FAERS Safety Report 18953024 (Version 7)
Quarter: 2021Q3

REPORT INFORMATION
  Report Type: Spontaneous
  Country: US (occurrence: US)
  Receive Date: 20210301
  Receipt Date: 20210819
  Transmission Date: 20211014
  Serious: Yes (Hospitalization, Other)
  Sender: FDA-Public Use
  Company Number: US-GLAXOSMITHKLINE-US2021AMR048157

PATIENT
  Age: 77 Year
  Sex: Female
  Weight: 44.75 kg

DRUGS (5)
  1. ZEJULA [Suspect]
     Active Substance: NIRAPARIB
     Dosage: 100 MG, QD
     Route: 048
  2. ZEJULA [Suspect]
     Active Substance: NIRAPARIB
     Indication: OVARIAN CANCER
     Dosage: 200 MG, QD
     Dates: start: 20210211
  3. ZEJULA [Suspect]
     Active Substance: NIRAPARIB
     Dosage: 100 MG, QD
     Route: 048
  4. ZEJULA [Suspect]
     Active Substance: NIRAPARIB
     Dosage: 200 MG, QD
     Route: 048
     Dates: start: 20210213
  5. ZEJULA [Suspect]
     Active Substance: NIRAPARIB
     Dosage: 100 MG, QD
     Route: 048
     Dates: start: 202102

REACTIONS (14)
  - Hypoaesthesia [Unknown]
  - Dizziness [Unknown]
  - Myocardial infarction [Unknown]
  - Peripheral coldness [Unknown]
  - Hospitalisation [Unknown]
  - Blood cholesterol increased [Unknown]
  - Dehydration [Unknown]
  - Headache [Unknown]
  - Product monitoring error [Unknown]
  - Erythema [Unknown]
  - Somnolence [Unknown]
  - Balance disorder [Unknown]
  - Chronic obstructive pulmonary disease [Unknown]
  - Oxygen saturation decreased [Unknown]

NARRATIVE: CASE EVENT DATE: 20210616
